FAERS Safety Report 12217112 (Version 6)
Quarter: 2016Q2

REPORT INFORMATION
  Report Type: Spontaneous
  Country: GB (occurrence: GB)
  Receive Date: 20160329
  Receipt Date: 20160628
  Transmission Date: 20160815
  Serious: Yes (Hospitalization)
  Sender: FDA-Public Use
  Company Number: GB-ACTAVIS-2016-06687

PATIENT
  Age: 55 Year
  Sex: Male

DRUGS (19)
  1. IRINOTECAN (UNKNOWN) [Suspect]
     Active Substance: IRINOTECAN
     Indication: PRODUCT USED FOR UNKNOWN INDICATION
     Dosage: UNK UNK, CYCLICAL
     Route: 041
  2. 5-FU                               /00098801/ [Suspect]
     Active Substance: FLUOROURACIL
     Dosage: UNK UNK, CYCLICAL
     Route: 040
  3. LEUCOVORIN                         /00566701/ [Suspect]
     Active Substance: LEUCOVORIN
     Dosage: UNK, CYCLICAL
     Route: 041
  4. ZALTRAP [Suspect]
     Active Substance: ZIV-AFLIBERCEPT
     Dosage: 316 MG, CYCLICAL
     Route: 065
     Dates: start: 20160302, end: 20160302
  5. ZALTRAP [Suspect]
     Active Substance: ZIV-AFLIBERCEPT
     Dosage: 316 MG, CYCLICAL
     Route: 065
     Dates: start: 20160203, end: 20160203
  6. ZALTRAP [Suspect]
     Active Substance: ZIV-AFLIBERCEPT
     Dosage: 316 MG, CYCLICAL  (FORM: INFUSION)
     Route: 065
     Dates: start: 20160120, end: 20160120
  7. NEULASTA [Suspect]
     Active Substance: PEGFILGRASTIM
     Indication: PRODUCT USED FOR UNKNOWN INDICATION
     Dosage: UNK, UNKNOWN
     Route: 065
  8. 5-FU                               /00098801/ [Suspect]
     Active Substance: FLUOROURACIL
     Indication: PRODUCT USED FOR UNKNOWN INDICATION
     Dosage: UNK UNK, CYCLICAL
     Route: 040
  9. ZALTRAP [Suspect]
     Active Substance: ZIV-AFLIBERCEPT
     Indication: PRODUCT USED FOR UNKNOWN INDICATION
     Dosage: UNK UNK, CYCLICAL
     Route: 065
     Dates: start: 20160525, end: 20160525
  10. ZALTRAP [Suspect]
     Active Substance: ZIV-AFLIBERCEPT
     Dosage: 316 MG, CYCLICAL
     Route: 065
     Dates: start: 20160302, end: 20160302
  11. 5-FU                               /00098801/ [Suspect]
     Active Substance: FLUOROURACIL
     Dosage: UNK, CYCLICAL
     Route: 041
  12. LEUCOVORIN                         /00566701/ [Suspect]
     Active Substance: LEUCOVORIN
     Indication: PRODUCT USED FOR UNKNOWN INDICATION
     Dosage: UNK UNK, CYCLICAL
     Route: 041
  13. ZALTRAP [Suspect]
     Active Substance: ZIV-AFLIBERCEPT
     Dosage: 316 MG, CYCLICAL (FORM: INFUSION)
     Route: 065
  14. ZALTRAP [Suspect]
     Active Substance: ZIV-AFLIBERCEPT
     Dosage: UNK UNK, CYCLICAL
     Route: 065
     Dates: start: 20160511, end: 20160511
  15. ZALTRAP [Suspect]
     Active Substance: ZIV-AFLIBERCEPT
     Dosage: 316 MG, CYCLICAL (FORM: INFUSION)
     Route: 065
  16. IRINOTECAN (UNKNOWN) [Suspect]
     Active Substance: IRINOTECAN
     Dosage: UNK, CYCLICAL
     Route: 041
  17. ZALTRAP [Suspect]
     Active Substance: ZIV-AFLIBERCEPT
     Dosage: 316 MG, CYCLICAL
     Route: 065
     Dates: start: 20160203, end: 20160203
  18. 5-FU                               /00098801/ [Suspect]
     Active Substance: FLUOROURACIL
     Dosage: UNK, CYCLICAL
     Route: 041
  19. ZALTRAP [Suspect]
     Active Substance: ZIV-AFLIBERCEPT
     Dosage: 316 MG, CYCLICAL (FORM: INFUSION)
     Route: 065
     Dates: start: 20160120, end: 20160120

REACTIONS (19)
  - Arthralgia [Unknown]
  - Lethargy [Unknown]
  - Oral pain [Unknown]
  - Fatigue [Not Recovered/Not Resolved]
  - Gingival pain [Unknown]
  - Lip dry [Unknown]
  - Oral herpes [Unknown]
  - Diarrhoea [Recovered/Resolved]
  - Pneumonia [Unknown]
  - Dry skin [Unknown]
  - Dyspepsia [Unknown]
  - Alopecia [Unknown]
  - Paraesthesia mucosal [Unknown]
  - Dysgeusia [Unknown]
  - Neuropathy peripheral [Unknown]
  - Diarrhoea [Unknown]
  - Paraesthesia oral [Unknown]
  - Abdominal pain upper [Unknown]
  - Fatigue [Unknown]
